FAERS Safety Report 4750828-3 (Version None)
Quarter: 2005Q3

REPORT INFORMATION
  Report Type: 
  Country: None (occurrence: None)
  Receive Date: 20050822
  Receipt Date: 20050805
  Transmission Date: 20060218
  Serious: Yes (Other)
  Sender: FDA-Public Use
  Company Number: 2005-0008598

PATIENT
  Sex: Female

DRUGS (6)
  1. TENOFOVIR DISOPROXIL FUMARATE (TENOFOVIR DISOPROXIL FUMARTE) [Suspect]
     Indication: HIV INFECTION
     Dosage: 300 MG, 1 IN  D, TRANSPLACENTAL
     Route: 064
     Dates: start: 20050209
  2. RETROVIR [Concomitant]
  3. REYAYTAZ (ATAZANAVIR SULFATE) [Concomitant]
  4. NORVIR [Concomitant]
  5. EPIVIR [Concomitant]
  6. VIDEX (DIDANSOINE) [Concomitant]

REACTIONS (5)
  - BRADYCARDIA FOETAL [None]
  - CAESAREAN SECTION [None]
  - DRUG EXPOSURE DURING PREGNANCY [None]
  - FOETAL GROWTH RETARDATION [None]
  - PREMATURE BABY [None]
